FAERS Safety Report 16728527 (Version 1)
Quarter: 2019Q3

REPORT INFORMATION
  Report Type: Spontaneous
  Country: IN (occurrence: IN)
  Receive Date: 20190822
  Receipt Date: 20190822
  Transmission Date: 20191005
  Serious: Yes (Other)
  Sender: FDA-Public Use
  Company Number: IN-CIPLA LTD.-2019IN05848

PATIENT

DRUGS (7)
  1. LEVOLIN (LEVOSALBUTAMOL) [Suspect]
     Active Substance: LEVALBUTEROL
     Indication: WHEEZING
     Dosage: UNK, PRN, 1-2 PUFFS IN 4 HOURS GAP WHEN NEEDED
     Route: 048
     Dates: start: 201906
  2. LEVOLIN (LEVOSALBUTAMOL) [Suspect]
     Active Substance: LEVALBUTEROL
     Dosage: UNK, 4 PUFFS
     Route: 048
     Dates: start: 20190813
  3. LEVOLIN (LEVOSALBUTAMOL) [Suspect]
     Active Substance: LEVALBUTEROL
     Dosage: 50 MCG, 5 TO 6 PUFFS
     Route: 048
     Dates: start: 20190813
  4. PARACETAMOL [Concomitant]
     Active Substance: ACETAMINOPHEN
     Indication: PYREXIA
     Dosage: UNK, PRN (WHENEVER REQUIRED)
     Route: 065
  5. BUDECORT [Suspect]
     Active Substance: BUDESONIDE
     Indication: WHEEZING
     Dosage: 200 MCG, 1 PUFF, PER DAY
     Route: 048
     Dates: start: 201906
  6. BUDECORT [Suspect]
     Active Substance: BUDESONIDE
     Dosage: UNK, 2 PUFFS
     Route: 048
     Dates: start: 20190813
  7. LEVOLIN (LEVOSALBUTAMOL) [Suspect]
     Active Substance: LEVALBUTEROL
     Dosage: UNK, 4 PUFFS OF LEVOSALBUTAMOL AT A TIME AROUND 9:30-10:00 PM
     Route: 048
     Dates: start: 20190813

REACTIONS (9)
  - Breath sounds abnormal [Not Recovered/Not Resolved]
  - Incorrect dose administered [Unknown]
  - Tremor [Not Recovered/Not Resolved]
  - Off label use [Unknown]
  - Heart rate increased [Not Recovered/Not Resolved]
  - Product use issue [Unknown]
  - Skin discolouration [Not Recovered/Not Resolved]
  - Drug ineffective [Unknown]
  - Insomnia [Not Recovered/Not Resolved]

NARRATIVE: CASE EVENT DATE: 2019
